APPROVED DRUG PRODUCT: ERGOLOID MESYLATES
Active Ingredient: ERGOLOID MESYLATES
Strength: 1MG
Dosage Form/Route: TABLET;ORAL
Application: A088891 | Product #001
Applicant: MUTUAL PHARMACEUTICAL CO INC
Approved: Nov 1, 1985 | RLD: No | RS: No | Type: DISCN